FAERS Safety Report 17737131 (Version 1)
Quarter: 2020Q2

REPORT INFORMATION
  Report Type: Spontaneous
  Country: SI (occurrence: SI)
  Receive Date: 20200502
  Receipt Date: 20200502
  Transmission Date: 20200714
  Serious: Yes (Life-Threatening, Other)
  Sender: FDA-Public Use
  Company Number: SI-TEVA-2020-SI-1229310

PATIENT
  Age: 62 Year
  Sex: Male

DRUGS (5)
  1. OKSALIPLATIN TEVA 5 MG/ML [Suspect]
     Active Substance: OXALIPLATIN
     Indication: RECTAL CANCER
     Route: 042
     Dates: start: 20190910, end: 20191231
  2. AGLURAB 850 MG [Concomitant]
  3. ASPIRIN 100 MG [Concomitant]
     Active Substance: ASPIRIN
  4. TERTENSIF SR 1,5 MG [Concomitant]
  5. CAPECITABINE. [Concomitant]
     Active Substance: CAPECITABINE
     Dosage: ACCORDING TO THE SCHEME

REACTIONS (2)
  - Deep vein thrombosis [Unknown]
  - Peripheral sensory neuropathy [Unknown]

NARRATIVE: CASE EVENT DATE: 20191213
